FAERS Safety Report 18812712 (Version 1)
Quarter: 2021Q1

REPORT INFORMATION
  Report Type: Spontaneous
  Country: US (occurrence: US)
  Receive Date: 20210131
  Receipt Date: 20210131
  Transmission Date: 20210419
  Serious: No
  Sender: FDA-Public Use
  Company Number: US-AMGEN-USASP2021014825

PATIENT
  Age: 49 Year
  Sex: Male
  Weight: 97.9 kg

DRUGS (2)
  1. VECTIBIX [Suspect]
     Active Substance: PANITUMUMAB
     Dosage: 600 MILLIGRAM
     Route: 042
     Dates: start: 20210106
  2. VECTIBIX [Suspect]
     Active Substance: PANITUMUMAB
     Indication: COLORECTAL CANCER
     Dosage: 600 MILLIGRAM
     Route: 042
     Dates: start: 20210106

REACTIONS (1)
  - Rash [Unknown]

NARRATIVE: CASE EVENT DATE: 20210128
